FAERS Safety Report 5724603-7 (Version None)
Quarter: 2008Q2

REPORT INFORMATION
  Report Type: 
  Country: None (occurrence: None)
  Receive Date: 20080430
  Receipt Date: 20080430
  Transmission Date: 20081010
  Serious: No
  Sender: FDA-Public Use
  Company Number: None

PATIENT
  Sex: Female

DRUGS (1)
  1. INFUVITE ADULT [Suspect]
     Indication: PARENTERAL NUTRITION
     Dosage: 5 ML DAILY IV
     Route: 042
     Dates: start: 20080423, end: 20080428

REACTIONS (2)
  - INTERNATIONAL NORMALISED RATIO DECREASED [None]
  - MEDICATION ERROR [None]
